APPROVED DRUG PRODUCT: AREDIA
Active Ingredient: PAMIDRONATE DISODIUM
Strength: 30MG/VIAL **Federal Register determination that product was not discontinued or withdrawn for safety or effectiveness reasons**
Dosage Form/Route: INJECTABLE;INJECTION
Application: N020036 | Product #001
Applicant: NOVARTIS PHARMACEUTICALS CORP
Approved: Oct 31, 1991 | RLD: Yes | RS: No | Type: DISCN